FAERS Safety Report 17450101 (Version 1)
Quarter: 2020Q1

REPORT INFORMATION
  Report Type: Spontaneous
  Country: DE (occurrence: DE)
  Receive Date: 20200224
  Receipt Date: 20200224
  Transmission Date: 20200409
  Serious: Yes (Hospitalization)
  Sender: FDA-Public Use
  Company Number: DE-ACCORD-173668

PATIENT
  Age: 86 Year
  Sex: Male
  Weight: 85 kg

DRUGS (13)
  1. TORASEMIDE [Suspect]
     Active Substance: TORSEMIDE
     Indication: PRODUCT USED FOR UNKNOWN INDICATION
     Dosage: 5 MG, 0.5-0-0-0
     Route: 048
  2. ATORVASTATIN [Concomitant]
     Active Substance: ATORVASTATIN
     Dosage: 20 MG, 0-0-0-1
     Route: 048
  3. FENOTEROL [Concomitant]
     Active Substance: FENOTEROL
     Dosage: 100 MCG, BEDARF
     Route: 055
  4. BISACODYL. [Concomitant]
     Active Substance: BISACODYL
     Dosage: 5 MG, 1-0-0-0
     Route: 048
  5. MAGNESIUM [Concomitant]
     Active Substance: MAGNESIUM
     Dosage: 250 MG, 1-0-0-0
     Route: 048
  6. PENTAERITHRITYL TETRANITRATE [Suspect]
     Active Substance: PENTAERYTHRITOL TETRANITRATE
     Indication: PRODUCT USED FOR UNKNOWN INDICATION
     Dosage: 50 MG, 1-0-1-0
     Route: 048
  7. ACETYLSALICYLIC ACID [Concomitant]
     Active Substance: ASPIRIN
     Dosage: 100 MG, 1-0-0-0
     Route: 048
  8. BICALUTAMIDE. [Suspect]
     Active Substance: BICALUTAMIDE
     Indication: PRODUCT USED FOR UNKNOWN INDICATION
     Dosage: 150 MG, 1-0-0-0
     Route: 048
  9. MIRABEGRON [Concomitant]
     Active Substance: MIRABEGRON
     Dosage: 50 MG, 1-0-0-0
     Route: 048
  10. TAMSULOSIN/TAMSULOSIN HYDROCHLORIDE [Concomitant]
     Active Substance: TAMSULOSIN HYDROCHLORIDE
     Dosage: 0.4 MG, 1-0-0-0
     Route: 048
  11. CLOPIDOGREL [Concomitant]
     Active Substance: CLOPIDOGREL BISULFATE
     Dosage: 75 MG, 1-0-0-0
     Route: 048
  12. BECLOMETASONE [Concomitant]
     Active Substance: BECLOMETHASONE DIPROPIONATE
     Dosage: 250 MCG, 1-0-0-0
     Route: 055
  13. LEVOTHYROXINE. [Concomitant]
     Active Substance: LEVOTHYROXINE
     Dosage: 125 MCG, 1-0-0-0
     Route: 048

REACTIONS (2)
  - Product monitoring error [Unknown]
  - Syncope [Unknown]

NARRATIVE: CASE EVENT DATE: 20191012
